FAERS Safety Report 21355454 (Version 4)
Quarter: 2023Q4

REPORT INFORMATION
  Report Type: Report from Study
  Country: CN (occurrence: None)
  Receive Date: 20220920
  Receipt Date: 20231127
  Transmission Date: 20240109
  Serious: Yes (Death)
  Sender: FDA-Public Use
  Company Number: CN-ROCHE-3181830

PATIENT
  Age: 59 Year
  Sex: Male
  Weight: 55 kg

DRUGS (1)
  1. ATEZOLIZUMAB [Suspect]
     Active Substance: ATEZOLIZUMAB
     Indication: Transitional cell carcinoma
     Dosage: DATE OF MOST RECENT DOSE OF BLINDED ATEZOLIZUMAB PRIOR TO AE AND SAE ONSET: 17/JUN/2022: 1680 MG
     Route: 041
     Dates: start: 20220520

REACTIONS (1)
  - Death [Fatal]

NARRATIVE: CASE EVENT DATE: 20220827
